FAERS Safety Report 12007378 (Version 1)
Quarter: 2016Q1

REPORT INFORMATION
  Report Type: Report from Study
  Country: US (occurrence: US)
  Receive Date: 20160204
  Receipt Date: 20160204
  Transmission Date: 20160526
  Serious: Yes (Other)
  Sender: FDA-Public Use
  Company Number: US-BAXTER-2016BAX004508

PATIENT
  Age: 35 Year
  Sex: Male
  Weight: 85 kg

DRUGS (40)
  1. TACROLIMUS. [Suspect]
     Active Substance: TACROLIMUS
     Dosage: REGIMEN#1
     Route: 048
     Dates: start: 20151101, end: 20151119
  2. METHOTREXATE [Suspect]
     Active Substance: METHOTREXATE
     Dosage: REGIMEN#2
     Route: 042
     Dates: start: 20151019, end: 20151019
  3. METHOTREXATE [Suspect]
     Active Substance: METHOTREXATE
     Dosage: REGIMEN#4
     Route: 042
     Dates: start: 20151027, end: 20151027
  4. URSODIOL. [Concomitant]
     Active Substance: URSODIOL
     Indication: PRODUCT USED FOR UNKNOWN INDICATION
     Route: 065
     Dates: start: 20150924
  5. DIPHENHYDRAMINE. [Concomitant]
     Active Substance: DIPHENHYDRAMINE
     Indication: PRODUCT USED FOR UNKNOWN INDICATION
     Route: 065
     Dates: start: 20151103
  6. PANTOPRAZOLE [Concomitant]
     Active Substance: PANTOPRAZOLE SODIUM
     Indication: PRODUCT USED FOR UNKNOWN INDICATION
     Route: 065
     Dates: start: 20151119
  7. METOCLOPRAMIDE. [Concomitant]
     Active Substance: METOCLOPRAMIDE
     Indication: PRODUCT USED FOR UNKNOWN INDICATION
     Route: 065
     Dates: start: 20151117
  8. PREDNISONE. [Suspect]
     Active Substance: PREDNISONE
     Indication: GRAFT VERSUS HOST DISEASE IN GASTROINTESTINAL TRACT
     Dosage: REGIMEN#1
     Route: 048
     Dates: start: 20151119, end: 20151201
  9. PREDNISONE. [Suspect]
     Active Substance: PREDNISONE
     Dosage: REGIMEN#3
     Route: 048
     Dates: start: 20151207, end: 20151211
  10. PREDNISONE. [Suspect]
     Active Substance: PREDNISONE
     Dosage: REGIMEN#7
     Route: 048
     Dates: start: 20151227
  11. BECLOMETASONE DIPROPIONATE [Suspect]
     Active Substance: BECLOMETHASONE DIPROPIONATE
     Indication: GRAFT VERSUS HOST DISEASE IN GASTROINTESTINAL TRACT
     Dosage: REGIMEN#1
     Route: 048
     Dates: start: 20151120, end: 20151123
  12. OXYCODONE [Concomitant]
     Active Substance: OXYCODONE
     Indication: PRODUCT USED FOR UNKNOWN INDICATION
     Route: 065
     Dates: start: 20151122
  13. SENNA [Concomitant]
     Active Substance: SENNA LEAF\SENNOSIDES\SENNOSIDES A AND B
     Indication: PRODUCT USED FOR UNKNOWN INDICATION
     Route: 065
     Dates: start: 20151204
  14. CYCLOPHOSPHAMIDE FOR INJECTION, USP [Suspect]
     Active Substance: CYCLOPHOSPHAMIDE
     Indication: BONE MARROW CONDITIONING REGIMEN
     Dosage: TOTAL DAILY DOSE: 4464 MG/250 ML, REGIMEN#1
     Route: 042
     Dates: start: 20151009, end: 20151010
  15. TACROLIMUS. [Suspect]
     Active Substance: TACROLIMUS
     Indication: PROPHYLAXIS AGAINST GRAFT VERSUS HOST DISEASE
     Dosage: REGIMEN#1
     Route: 042
     Dates: start: 20151015, end: 20151015
  16. MAGNESIUM SULFATE/POTASSIUM CHLORIDE/SODIUM CHLORIDE [Concomitant]
     Indication: PRODUCT USED FOR UNKNOWN INDICATION
     Route: 065
     Dates: start: 20151102
  17. POTASSIUM CHLORIDE. [Concomitant]
     Active Substance: POTASSIUM CHLORIDE
     Indication: PRODUCT USED FOR UNKNOWN INDICATION
     Route: 065
     Dates: start: 20151124
  18. TACROLIMUS. [Suspect]
     Active Substance: TACROLIMUS
     Dosage: REGIMEN#2
     Route: 042
     Dates: start: 20151022, end: 20151025
  19. PREDNISONE. [Suspect]
     Active Substance: PREDNISONE
     Dosage: REGIMEN#4
     Route: 048
     Dates: start: 20151212, end: 20151216
  20. HYDROCORTISONE. [Concomitant]
     Active Substance: HYDROCORTISONE
     Indication: PRODUCT USED FOR UNKNOWN INDICATION
     Route: 065
     Dates: start: 20151021
  21. LORAZEPAM. [Concomitant]
     Active Substance: LORAZEPAM
     Indication: PRODUCT USED FOR UNKNOWN INDICATION
     Route: 065
     Dates: start: 20151102
  22. SULFAMETHOXAZOLE-TRIMETHOPRIM (SMZ) [Concomitant]
     Active Substance: SULFAMETHOXAZOLE\TRIMETHOPRIM
     Indication: PRODUCT USED FOR UNKNOWN INDICATION
     Route: 065
     Dates: start: 20151110
  23. TACROLIMUS. [Suspect]
     Active Substance: TACROLIMUS
     Dosage: REGIMEN#3
     Route: 042
     Dates: start: 20151025, end: 20151031
  24. TACROLIMUS. [Suspect]
     Active Substance: TACROLIMUS
     Dosage: REGIMEN#2
     Route: 048
     Dates: start: 20151120
  25. METHOTREXATE [Suspect]
     Active Substance: METHOTREXATE
     Indication: PROPHYLAXIS AGAINST GRAFT VERSUS HOST DISEASE
     Dosage: REGIMEN#1
     Route: 042
     Dates: start: 20151017, end: 20151017
  26. PREDNISONE. [Suspect]
     Active Substance: PREDNISONE
     Indication: ACUTE GRAFT VERSUS HOST DISEASE
     Dosage: REGIMEN#2
     Route: 048
     Dates: start: 20151202, end: 20151206
  27. PREDNISONE. [Suspect]
     Active Substance: PREDNISONE
     Dosage: REGIMEN#5
     Route: 048
     Dates: start: 20151217, end: 20151221
  28. PREDNISONE. [Suspect]
     Active Substance: PREDNISONE
     Dosage: REGIMEN#6
     Route: 048
     Dates: start: 20151222, end: 20151226
  29. VALACYCLOVIR [Concomitant]
     Active Substance: VALACYCLOVIR HYDROCHLORIDE
     Indication: PRODUCT USED FOR UNKNOWN INDICATION
     Route: 065
     Dates: start: 20151119
  30. METHOTREXATE [Suspect]
     Active Substance: METHOTREXATE
     Dosage: REGIMEN#3
     Route: 042
     Dates: start: 20151022, end: 20151022
  31. MAGNESIUM OXIDE. [Concomitant]
     Active Substance: MAGNESIUM OXIDE
     Indication: PRODUCT USED FOR UNKNOWN INDICATION
     Route: 065
     Dates: start: 20151201
  32. BUSULFAN [Suspect]
     Active Substance: BUSULFAN
     Indication: BONE MARROW CONDITIONING REGIMEN
     Dosage: TOTAL DAILY DOSE: 300 MG, REGIMEN#1
     Route: 042
     Dates: start: 20151011, end: 20151014
  33. ACYCLOVIR. [Concomitant]
     Active Substance: ACYCLOVIR
     Indication: PRODUCT USED FOR UNKNOWN INDICATION
     Route: 065
     Dates: start: 20151031, end: 20151118
  34. BOSTON BUTT [Concomitant]
     Indication: PRODUCT USED FOR UNKNOWN INDICATION
     Route: 065
     Dates: start: 20151021
  35. FLUCONAZOLE. [Concomitant]
     Active Substance: FLUCONAZOLE
     Indication: PRODUCT USED FOR UNKNOWN INDICATION
     Route: 065
     Dates: start: 20151101, end: 20151118
  36. CLOTRIMAZOLE. [Concomitant]
     Active Substance: CLOTRIMAZOLE
     Indication: PRODUCT USED FOR UNKNOWN INDICATION
     Route: 065
     Dates: start: 20151102, end: 20151117
  37. BECLOMETASONE DIPROPIONATE [Suspect]
     Active Substance: BECLOMETHASONE DIPROPIONATE
     Indication: ACUTE GRAFT VERSUS HOST DISEASE
     Dosage: REGIMEN#2
     Route: 048
     Dates: start: 20151124
  38. ONDANSETRON [Concomitant]
     Active Substance: ONDANSETRON
     Indication: PRODUCT USED FOR UNKNOWN INDICATION
     Route: 065
     Dates: start: 20151102, end: 20151204
  39. POSACONAZOLE [Concomitant]
     Active Substance: POSACONAZOLE
     Indication: PRODUCT USED FOR UNKNOWN INDICATION
     Route: 065
     Dates: start: 20150919
  40. DOCUSATE [Concomitant]
     Active Substance: DOCUSATE
     Indication: PRODUCT USED FOR UNKNOWN INDICATION
     Route: 065
     Dates: start: 20151204

REACTIONS (1)
  - Malignant melanoma in situ [Not Recovered/Not Resolved]

NARRATIVE: CASE EVENT DATE: 20150812
